FAERS Safety Report 13656558 (Version 1)
Quarter: 2017Q2

REPORT INFORMATION
  Report Type: Spontaneous
  Country: FR (occurrence: FR)
  Receive Date: 20170615
  Receipt Date: 20170615
  Transmission Date: 20170830
  Serious: Yes (Death)
  Sender: FDA-Public Use
  Company Number: FR-PFIZER INC-2017173610

PATIENT
  Age: 53 Year
  Sex: Male

DRUGS (8)
  1. TAZOCILLINE [Suspect]
     Active Substance: PIPERACILLIN SODIUM\TAZOBACTAM SODIUM
     Indication: PNEUMONIA
     Dosage: 4 G, 3X/DAY
     Route: 042
     Dates: start: 20170321, end: 20170328
  2. CIFLOX /00697201/ [Suspect]
     Active Substance: CIPROFLOXACIN
     Indication: PNEUMONIA
     Dosage: 400 MG, 2X/DAY
     Route: 042
     Dates: start: 20170321, end: 20170328
  3. ROCEPHINE [Concomitant]
     Active Substance: CEFTRIAXONE SODIUM
     Indication: PNEUMONIA
     Dosage: UNK
     Dates: start: 201703
  4. ROVAMYCINE /00074401/ [Suspect]
     Active Substance: SPIRAMYCIN
     Indication: PNEUMONIA
     Dosage: 3 MILLION IU, 3X/DAY
     Dates: start: 20170322, end: 20170328
  5. CORDARONE [Concomitant]
     Active Substance: AMIODARONE HYDROCHLORIDE
     Indication: ATRIAL FIBRILLATION
     Dosage: UNK
     Dates: start: 20170321
  6. PARACETAMOL [Concomitant]
     Active Substance: ACETAMINOPHEN
     Indication: BRONCHITIS
     Dosage: UNK
     Dates: start: 201703
  7. ASPIRIN /00002701/ [Concomitant]
     Active Substance: ASPIRIN
     Indication: PERICARDIAL EFFUSION
     Dosage: UNK
     Dates: start: 20170319, end: 20170320
  8. OFLOCET /00731801/ [Concomitant]
     Active Substance: OFLOXACIN
     Indication: PNEUMONIA
     Dosage: UNK
     Dates: start: 201703

REACTIONS (1)
  - Toxic epidermal necrolysis [Fatal]

NARRATIVE: CASE EVENT DATE: 20170328
